FAERS Safety Report 10953637 (Version 1)
Quarter: 2015Q1

REPORT INFORMATION
  Report Type: Spontaneous
  Country: US (occurrence: None)
  Receive Date: 20150323
  Receipt Date: 20150323
  Transmission Date: 20150721
  Serious: No
  Sender: FDA-Public Use
  Company Number: VIT-2015-00263

PATIENT
  Age: 58 Year
  Sex: Female
  Weight: 92.5 kg

DRUGS (2)
  1. RENVELA [Concomitant]
     Active Substance: SEVELAMER CARBONATE
  2. VELPHORO [Suspect]
     Active Substance: FERRIC OXYHYDROXIDE
     Indication: HYPERPHOSPHATAEMIA
     Route: 048
     Dates: start: 201410, end: 201411

REACTIONS (2)
  - Product taste abnormal [None]
  - Blood phosphorus abnormal [None]

NARRATIVE: CASE EVENT DATE: 201410
